FAERS Safety Report 14963838 (Version 2)
Quarter: 2018Q2

REPORT INFORMATION
  Report Type: Spontaneous
  Country: US (occurrence: US)
  Receive Date: 20180601
  Receipt Date: 20180625
  Transmission Date: 20180711
  Serious: No
  Sender: FDA-Public Use
  Company Number: US-SA-2018SA142594

PATIENT
  Age: 64 Year
  Sex: Male
  Weight: 104.31 kg

DRUGS (21)
  1. FLONASE [FLUTICASONE PROPIONATE] [Concomitant]
  2. BENICAR [Concomitant]
     Active Substance: OLMESARTAN MEDOXOMIL
     Dosage: 10 MG, BID
     Route: 048
  3. PRALUENT [Suspect]
     Active Substance: ALIROCUMAB
     Indication: HYPERLIPIDAEMIA
     Dosage: 75 MG/ML, QOW
     Dates: start: 20180510, end: 20180510
  4. PLAVIX [Concomitant]
     Active Substance: CLOPIDOGREL BISULFATE
     Dosage: 75 MG, QD
     Route: 048
  5. IMDUR [Concomitant]
     Active Substance: ISOSORBIDE MONONITRATE
     Dosage: 100 MG, QD
     Route: 048
  6. RANEXA [Concomitant]
     Active Substance: RANOLAZINE
     Dosage: 1000 MG, BID
     Route: 048
  7. DICLOFENAC SODIUM. [Concomitant]
     Active Substance: DICLOFENAC SODIUM
  8. LASIX [Concomitant]
     Active Substance: FUROSEMIDE
     Dosage: 40 MG, PRN
     Route: 048
  9. LOVAZA [Concomitant]
     Active Substance: OMEGA-3-ACID ETHYL ESTERS
     Dosage: 3 G, BID
     Route: 048
  10. PITAVASTATIN CALCIUM [Concomitant]
     Active Substance: PITAVASTATIN CALCIUM
     Dosage: 1 MG, QD
     Route: 048
  11. ARISTOCORT [TRIAMCINOLONE ACETONIDE] [Concomitant]
     Dosage: UNK UNK, BID
     Route: 061
  12. PEPCID [FAMOTIDINE] [Concomitant]
     Dosage: 20 MG, PRN
     Route: 048
  13. ATARAX [Concomitant]
     Active Substance: HYDROXYZINE HYDROCHLORIDE
     Dosage: 1 DF, BID
     Route: 048
  14. FISH OIL;OMEGA-3 FATTY ACIDS [Concomitant]
     Dosage: 3000 MG, BID
     Route: 048
  15. PROTONIX [PANTOPRAZOLE SODIUM SESQUIHYDRATE] [Concomitant]
     Dosage: 40 MG, QD
     Route: 048
  16. DESYREL [Concomitant]
     Active Substance: TRAZODONE HYDROCHLORIDE
     Dosage: 100 MG, BID
     Route: 048
  17. CEFTIN [CEFUROXIME AXETIL] [Concomitant]
     Dosage: 500 MG, BID
     Route: 048
  18. ASPIRIN [ACETYLSALICYLIC ACID] [Concomitant]
     Active Substance: ASPIRIN
     Dosage: 81 MG, QD
     Route: 048
  19. NITROMIST [Concomitant]
     Active Substance: NITROGLYCERIN
     Dosage: UNK UNK, QD
     Route: 048
  20. EVOLOCUMAB [Concomitant]
     Active Substance: EVOLOCUMAB
     Dosage: 140 MG, QOW
  21. TOPROL XL [Concomitant]
     Active Substance: METOPROLOL SUCCINATE
     Dosage: 100 MG, QD
     Route: 048

REACTIONS (3)
  - Arthralgia [Recovered/Resolved]
  - Myalgia [Recovered/Resolved]
  - Muscle spasms [Recovered/Resolved]

NARRATIVE: CASE EVENT DATE: 20180510
